FAERS Safety Report 8819948 (Version 2)
Quarter: 2013Q1

REPORT INFORMATION
  Report Type: Spontaneous
  Country: US (occurrence: US)
  Receive Date: 20121001
  Receipt Date: 20130118
  Transmission Date: 20140127
  Serious: No
  Sender: FDA-Public Use
  Company Number: US-ASTRAZENECA-2012SE70547

PATIENT
  Age: 55 Year
  Sex: Male
  Weight: 98.4 kg

DRUGS (7)
  1. CRESTOR [Suspect]
     Indication: HYPERCHOLESTEROLAEMIA
     Route: 048
  2. CRESTOR [Suspect]
     Indication: LIPIDS INCREASED
     Route: 048
  3. CRESTOR [Suspect]
     Indication: HYPERCHOLESTEROLAEMIA
     Route: 048
     Dates: start: 20110801, end: 20120725
  4. CRESTOR [Suspect]
     Indication: LIPIDS INCREASED
     Route: 048
     Dates: start: 20110801, end: 20120725
  5. TRICOR [Concomitant]
     Indication: LIPIDS INCREASED
  6. CIALIS [Concomitant]
     Indication: LIPIDS INCREASED
  7. TESTOSTERONE [Concomitant]
     Indication: BLOOD TESTOSTERONE DECREASED

REACTIONS (3)
  - Bone pain [Unknown]
  - Blood creatine phosphokinase increased [Unknown]
  - Myalgia [Recovering/Resolving]
